FAERS Safety Report 23143285 (Version 1)
Quarter: 2023Q4

REPORT INFORMATION
  Report Type: Spontaneous
  Country: US (occurrence: US)
  Receive Date: 20231103
  Receipt Date: 20231103
  Transmission Date: 20240110
  Serious: Yes (Other)
  Sender: FDA-Public Use
  Company Number: US-ROCHE-3206085

PATIENT
  Age: 68 Year
  Sex: Female

DRUGS (3)
  1. CAPECITABINE [Suspect]
     Active Substance: CAPECITABINE
     Indication: Breast cancer female
     Dosage: TAKE 1 TABLET BY MOUTH ?ON DAYS 1-14 OF EACH 21 DAY CYCLE; TAKE WITH WATER WITHIN 30 MIN
     Route: 048
  2. CAPECITABINE [Suspect]
     Active Substance: CAPECITABINE
     Indication: Metastases to lymph nodes
     Dosage: TAKE 1 TABLET BY MOUTH ?ON DAYS 1-14 OF EACH 21 DAY CYCLE; TAKE WITH WATER WITHIN 30 MIN
     Route: 048
  3. CAPECITABINE [Suspect]
     Active Substance: CAPECITABINE
     Indication: Bone cancer
     Dosage: TAKE 1 TABLET BY MOUTH ?ON DAYS 1-14 OF EACH 21 DAY CYCLE; TAKE WITH WATER WITHIN 30 MIN
     Route: 048

REACTIONS (3)
  - Deafness [Unknown]
  - Hypoacusis [Unknown]
  - Dysphonia [Unknown]
